FAERS Safety Report 8810105 (Version 2)
Quarter: 2012Q4

REPORT INFORMATION
  Report Type: Report from Study
  Country: AT (occurrence: AT)
  Receive Date: 20120926
  Receipt Date: 20121003
  Transmission Date: 20130627
  Serious: Yes (Hospitalization)
  Sender: FDA-Public Use
  Company Number: AT-AMGEN-AUTCT2012055055

PATIENT
  Age: 59 Year
  Sex: Female

DRUGS (9)
  1. DENOSUMAB [Suspect]
     Indication: BONE DENSITY DECREASED
     Dosage: 60 mg, UNK
     Route: 058
     Dates: start: 20090916
  2. SEROQUEL [Concomitant]
     Indication: DEPRESSION
     Dosage: 25 mg, bid
     Dates: start: 201205
  3. HIRUDOID [Concomitant]
     Indication: VARICOSE VEIN
     Dosage: UNK UNK, prn
     Dates: start: 2010
  4. HALCION [Concomitant]
     Indication: SLEEP DISORDER
     Dosage: 0.25 mg, qd
     Dates: start: 201011
  5. AMELIOR [Concomitant]
     Indication: HYPERTENSION
     Dosage: UNK UNK, qd
     Dates: start: 201202, end: 201205
  6. THROMBO ASS [Concomitant]
     Indication: PROPHYLAXIS
     Dosage: 100 mg, qd
     Dates: start: 201205
  7. NEUROBION FORTE [Concomitant]
     Indication: ALCOHOLIC LIVER DISEASE
     Dosage: UNK UNK, bid
     Dates: start: 201205
  8. NOMEXOR [Concomitant]
     Indication: HYPERTENSION
     Dosage: 5 mg, qd
     Dates: end: 201205
  9. FOLSAN [Concomitant]
     Indication: FOLATE DEFICIENCY
     Dosage: 5 mg, qd
     Dates: start: 201205

REACTIONS (1)
  - Convulsion [Recovered/Resolved]
